FAERS Safety Report 4386069-1 (Version None)
Quarter: 2004Q2

REPORT INFORMATION
  Report Type: 
  Country: None (occurrence: None)
  Receive Date: 20040610
  Receipt Date: 20030714
  Transmission Date: 20050107
  Serious: Yes (Disabling)
  Sender: FDA-Public Use
  Company Number: 2003UW09223

PATIENT
  Sex: Male

DRUGS (6)
  1. PRILOSEC [Suspect]
     Indication: GASTROOESOPHAGEAL REFLUX DISEASE
     Dates: start: 19990101
  2. PRILOSEC [Suspect]
     Indication: HELICOBACTER INFECTION
     Dates: start: 19990101
  3. NEXIUM [Suspect]
     Indication: GASTROOESOPHAGEAL REFLUX DISEASE
  4. PREVACID [Suspect]
     Indication: GASTROOESOPHAGEAL REFLUX DISEASE
  5. PROTONIX [Suspect]
     Indication: GASTROOESOPHAGEAL REFLUX DISEASE
  6. ACIPHEX [Suspect]
     Indication: GASTROOESOPHAGEAL REFLUX DISEASE

REACTIONS (14)
  - ANXIETY [None]
  - BACK PAIN [None]
  - CHEST DISCOMFORT [None]
  - CHEST PAIN [None]
  - CHILLS [None]
  - COLD SWEAT [None]
  - DYSPNOEA [None]
  - FEELING ABNORMAL [None]
  - HEPATIC ENZYME INCREASED [None]
  - LOSS OF CONSCIOUSNESS [None]
  - NAUSEA [None]
  - SUICIDAL IDEATION [None]
  - TOOTH INJURY [None]
  - VOMITING [None]
